FAERS Safety Report 19438367 (Version 2)
Quarter: 2021Q2

REPORT INFORMATION
  Report Type: Spontaneous
  Country: SI (occurrence: SI)
  Receive Date: 20210618
  Receipt Date: 20210629
  Transmission Date: 20210717
  Serious: Yes (Death, Hospitalization, Other)
  Sender: FDA-Public Use
  Company Number: NVSC2021SI130391

PATIENT
  Age: 38 Year
  Sex: Female

DRUGS (10)
  1. FEMARA [Suspect]
     Active Substance: LETROZOLE
     Indication: PULMONARY MASS
     Dosage: UNK
     Route: 065
     Dates: start: 20100715
  2. PACLITAXEL. [Concomitant]
     Active Substance: PACLITAXEL
     Indication: PRODUCT USED FOR UNKNOWN INDICATION
     Dosage: 90MG/ M2
     Route: 065
  3. METHOTREXATE. [Suspect]
     Active Substance: METHOTREXATE
     Indication: BREAST CANCER
  4. FLUOROURACIL. [Suspect]
     Active Substance: FLUOROURACIL
     Indication: METASTASES TO LYMPH NODES
     Dosage: UNK
     Route: 065
     Dates: start: 19970110
  5. FLUOROURACIL. [Suspect]
     Active Substance: FLUOROURACIL
     Indication: BREAST CANCER
  6. FEMARA [Suspect]
     Active Substance: LETROZOLE
     Indication: BREAST CANCER
  7. FULVESTRANT. [Suspect]
     Active Substance: FULVESTRANT
     Indication: BREAST CANCER
     Dosage: 500 MG (S.C)
     Route: 058
     Dates: start: 20190729
  8. METHOTREXATE. [Suspect]
     Active Substance: METHOTREXATE
     Indication: METASTASES TO LYMPH NODES
     Dosage: UNK
     Route: 065
     Dates: start: 19970110
  9. FEMARA [Suspect]
     Active Substance: LETROZOLE
     Indication: LIVER INJURY
     Dosage: 2.5 MG, QD
     Route: 065
     Dates: start: 20100529, end: 20161027
  10. ALPELISIB [Concomitant]
     Active Substance: ALPELISIB
     Indication: PRODUCT USED FOR UNKNOWN INDICATION
     Dosage: (TWO WEEKS 14?JUL ?28?JUL)
     Route: 065

REACTIONS (37)
  - Abdominal pain [Unknown]
  - Second primary malignancy [Unknown]
  - Pulmonary fibrosis [Unknown]
  - Malignant neoplasm progression [Not Recovered/Not Resolved]
  - Hypercalcaemia [Unknown]
  - Insomnia [Unknown]
  - Ascites [Not Recovered/Not Resolved]
  - Respiratory tract infection [Recovered/Resolved]
  - Fatigue [Recovering/Resolving]
  - Hot flush [Unknown]
  - Cardiopulmonary failure [Fatal]
  - Abdominal distension [Unknown]
  - Lymphoedema [Not Recovered/Not Resolved]
  - Dysgeusia [Recovering/Resolving]
  - Weight decreased [Recovering/Resolving]
  - Metastases to bone [Not Recovered/Not Resolved]
  - Metastases to liver [Not Recovered/Not Resolved]
  - Metastases to lung [Not Recovered/Not Resolved]
  - Pleural neoplasm [Unknown]
  - Cough [Unknown]
  - Nasopharyngitis [Unknown]
  - Depression [Unknown]
  - Breast cancer [Fatal]
  - Liver disorder [Unknown]
  - Neutropenia [Recovered/Resolved]
  - Decreased appetite [Recovering/Resolving]
  - Spinal pain [Unknown]
  - Malignant peritoneal neoplasm [Not Recovered/Not Resolved]
  - Adenocarcinoma [Unknown]
  - Body temperature increased [Unknown]
  - Peritonitis bacterial [Unknown]
  - Asthenia [Recovering/Resolving]
  - Metastases to lymph nodes [Fatal]
  - Pleural effusion [Not Recovered/Not Resolved]
  - Febrile neutropenia [Recovered/Resolved]
  - Musculoskeletal chest pain [Recovered/Resolved]
  - General physical health deterioration [Unknown]

NARRATIVE: CASE EVENT DATE: 19970116
